FAERS Safety Report 17135119 (Version 2)
Quarter: 2020Q1

REPORT INFORMATION
  Report Type: Spontaneous
  Country: US (occurrence: US)
  Receive Date: 20191210
  Receipt Date: 20200220
  Transmission Date: 20200409
  Serious: No
  Sender: FDA-Public Use
  Company Number: US-PFIZER INC-2019532342

PATIENT
  Age: 59 Year
  Sex: Female
  Weight: 82.54 kg

DRUGS (2)
  1. XELJANZ XR [Suspect]
     Active Substance: TOFACITINIB CITRATE
     Indication: AUTOIMMUNE DISORDER
     Dosage: 11 MG, DAILY
     Route: 048
     Dates: start: 201812
  2. XELJANZ XR [Suspect]
     Active Substance: TOFACITINIB CITRATE
     Indication: RHEUMATOID ARTHRITIS

REACTIONS (8)
  - Upper respiratory tract congestion [Unknown]
  - Fatigue [Unknown]
  - Herpes zoster [Unknown]
  - Oropharyngeal pain [Unknown]
  - Headache [Unknown]
  - Rhinorrhoea [Unknown]
  - Pyrexia [Unknown]
  - Respiratory tract congestion [Recovered/Resolved]

NARRATIVE: CASE EVENT DATE: 201910
